FAERS Safety Report 6452928-9 (Version None)
Quarter: 2009Q4

REPORT INFORMATION
  Report Type: 
  Country: None (occurrence: None)
  Receive Date: 20091124
  Receipt Date: 20091113
  Transmission Date: 20100525
  Serious: Yes (Other)
  Sender: FDA-Public Use
  Company Number: GB-JNJFOC-20091104656

PATIENT
  Sex: Female
  Weight: 66 kg

DRUGS (5)
  1. REMICADE [Suspect]
     Indication: RHEUMATOID ARTHRITIS
     Route: 042
     Dates: start: 20041115, end: 20051014
  2. OTHER BIOLOGICS [Suspect]
     Indication: RHEUMATOID ARTHRITIS
  3. BRUFEN RETARD [Concomitant]
  4. PARACETAMOL [Concomitant]
  5. METHOTREXATE [Concomitant]

REACTIONS (1)
  - SKIN CANCER [None]
